FAERS Safety Report 6163699-8 (Version None)
Quarter: 2009Q2

REPORT INFORMATION
  Report Type: 
  Country: None (occurrence: None)
  Receive Date: 20090420
  Receipt Date: 20090420
  Transmission Date: 20091009
  Serious: No
  Sender: FDA-Public Use
  Company Number: None

PATIENT
  Age: 64 Year
  Sex: Female
  Weight: 49.8957 kg

DRUGS (1)
  1. ONTAK [Suspect]
     Indication: ANGIOIMMUNOBLASTIC T-CELL LYMPHOMA
     Dosage: IV DRIP
     Route: 041
     Dates: start: 20090330, end: 20090403

REACTIONS (3)
  - BLINDNESS [None]
  - COLOUR BLINDNESS [None]
  - VISUAL ACUITY REDUCED [None]
